FAERS Safety Report 16952811 (Version 2)
Quarter: 2019Q4

REPORT INFORMATION
  Report Type: Spontaneous
  Country: GB (occurrence: GB)
  Receive Date: 20191023
  Receipt Date: 20191220
  Transmission Date: 20200122
  Serious: Yes (Disabling, Other)
  Sender: FDA-Public Use
  Company Number: GB-ELI_LILLY_AND_COMPANY-GB201910007179

PATIENT
  Age: 49 Year
  Sex: Male
  Weight: 90 kg

DRUGS (4)
  1. HALOPERIDOL. [Concomitant]
     Active Substance: HALOPERIDOL
     Indication: PRODUCT USED FOR UNKNOWN INDICATION
     Dosage: UNK, UNKNOWN
     Route: 065
     Dates: start: 20190510, end: 20190514
  2. FLUOXETINE [Interacting]
     Active Substance: FLUOXETINE HYDROCHLORIDE
     Dosage: 20 MG, DAILY
     Route: 048
  3. PROPRANOLOL [Interacting]
     Active Substance: PROPRANOLOL HYDROCHLORIDE
     Indication: ANXIETY
     Dosage: UNK, DAILY (1-3 A DAY)
     Route: 048
     Dates: start: 20190530, end: 20190620
  4. FLUOXETINE [Suspect]
     Active Substance: FLUOXETINE HYDROCHLORIDE
     Indication: OBSESSIVE-COMPULSIVE DISORDER
     Dosage: 60 MG, DAILY
     Route: 048

REACTIONS (8)
  - Drug dose titration not performed [Unknown]
  - Cataract [Unknown]
  - Ear discomfort [Unknown]
  - Lacrimation increased [Recovered/Resolved]
  - Tinnitus [Not Recovered/Not Resolved]
  - Vitreous floaters [Recovered/Resolved]
  - Vision blurred [Not Recovered/Not Resolved]
  - Drug interaction [Unknown]

NARRATIVE: CASE EVENT DATE: 20190602
